FAERS Safety Report 8598097-0 (Version None)
Quarter: 2012Q3

REPORT INFORMATION
  Report Type: 
  Country: None (occurrence: None)
  Receive Date: 20120816
  Receipt Date: 20120810
  Transmission Date: 20120928
  Serious: No
  Sender: FDA-Public Use
  Company Number: US-B.I. PHARMACEUTICALS,INC./RIDGEFIELD-2012-BP-18878BP

PATIENT
  Sex: Female

DRUGS (10)
  1. ARICEPT [Concomitant]
     Indication: MEMORY IMPAIRMENT
     Dosage: 10 MG
     Route: 048
     Dates: start: 20120604
  2. SINGULAIR [Concomitant]
     Indication: HYPERSENSITIVITY
     Dosage: 10 MG
     Route: 048
  3. DIGOXIN [Concomitant]
     Indication: CARDIAC DISORDER
     Dosage: 0.125 MG
     Route: 048
  4. ERYTHROMYCIN [Concomitant]
     Indication: ANTIBIOTIC THERAPY
     Dosage: 500 MG
     Dates: start: 20120625
  5. RIFAMPIN [Concomitant]
     Indication: ANTIBIOTIC THERAPY
     Route: 048
     Dates: start: 20120530
  6. SPIRIVA [Suspect]
     Indication: DYSPNOEA
     Dosage: 18 MCG
     Route: 055
  7. SPIRIVA [Suspect]
     Route: 048
     Dates: start: 20120810, end: 20120810
  8. ESTRADIOL [Concomitant]
     Indication: HORMONE THERAPY
     Dosage: 1 MG
     Route: 048
  9. HYDROCODONE BITARTRATE + ACETAMINOPHEN [Concomitant]
     Indication: PAIN
     Route: 048
  10. TIZANIDINE [Concomitant]
     Indication: HYPOTONIA
     Dosage: 4 MG
     Route: 048

REACTIONS (1)
  - INCORRECT ROUTE OF DRUG ADMINISTRATION [None]
